FAERS Safety Report 17576491 (Version 1)
Quarter: 2020Q1

REPORT INFORMATION
  Report Type: Spontaneous
  Country: US (occurrence: US)
  Receive Date: 20200324
  Receipt Date: 20200324
  Transmission Date: 20200409
  Serious: No
  Sender: FDA-Public Use
  Company Number: US-BAYER-2020-049393

PATIENT
  Age: 89 Year
  Sex: Female

DRUGS (2)
  1. BAYER ASPIRIN [Concomitant]
     Active Substance: ASPIRIN
     Dosage: UNK
     Route: 048
  2. ALEVE [Suspect]
     Active Substance: NAPROXEN SODIUM
     Dosage: 1 DF
     Route: 048

REACTIONS (1)
  - Expired product administered [Unknown]
